FAERS Safety Report 10102659 (Version 1)
Quarter: 2014Q2

REPORT INFORMATION
  Report Type: Spontaneous
  Country: IT (occurrence: IT)
  Receive Date: 20140424
  Receipt Date: 20140424
  Transmission Date: 20141212
  Serious: Yes (Hospitalization)
  Sender: FDA-Public Use
  Company Number: IT-MYLANLABS-2014S1008713

PATIENT
  Age: 21 Year
  Sex: 0

DRUGS (8)
  1. METFORMIN [Suspect]
     Indication: PRODUCT USED FOR UNKNOWN INDICATION
     Dosage: 2500 MG DAILY
     Route: 048
     Dates: start: 20140219, end: 20140219
  2. DICLOFENAC [Suspect]
     Indication: PRODUCT USED FOR UNKNOWN INDICATION
     Dosage: 500 MG DAILY
     Route: 048
     Dates: start: 20140219, end: 20140219
  3. SIMVASTATIN [Suspect]
     Indication: PRODUCT USED FOR UNKNOWN INDICATION
     Dosage: 560 MG DAILY
     Route: 048
     Dates: start: 20130219, end: 20130219
  4. PLASIL /00041902/ [Suspect]
     Indication: PRODUCT USED FOR UNKNOWN INDICATION
     Dosage: 20 MG DAILY
     Route: 048
     Dates: start: 20140219, end: 20140219
  5. RAMIPRIL [Suspect]
     Indication: PRODUCT USED FOR UNKNOWN INDICATION
     Dosage: 20 MG DAILY
     Route: 048
     Dates: start: 20140219, end: 20140219
  6. TRIMETON /00072502/ [Suspect]
     Indication: PRODUCT USED FOR UNKNOWN INDICATION
     Dosage: 40 MG DAILY
     Route: 048
     Dates: start: 20140219, end: 20140219
  7. CO EFFERALGAN [Suspect]
     Indication: PRODUCT USED FOR UNKNOWN INDICATION
     Dosage: 4000 MG DAILY
     Dates: start: 20140219, end: 20140219
  8. METRONIDAZOLE [Suspect]
     Indication: PRODUCT USED FOR UNKNOWN INDICATION
     Dosage: 2500 MG DAILY
     Route: 048
     Dates: start: 20140219, end: 20140219

REACTIONS (2)
  - Poisoning deliberate [Recovered/Resolved]
  - Drug abuse [Recovered/Resolved]
